FAERS Safety Report 4370106-4 (Version None)
Quarter: 2004Q2

REPORT INFORMATION
  Report Type: 
  Country: None (occurrence: None)
  Receive Date: 20040527
  Receipt Date: 20040507
  Transmission Date: 20050107
  Serious: Yes (Other)
  Sender: FDA-Public Use
  Company Number: CA_040406840

PATIENT
  Age: 54 Year
  Sex: Male

DRUGS (7)
  1. GEMZAR [Suspect]
     Indication: PANCREATIC CARCINOMA
     Dosage: 1000 MG/M2 OTHER
     Dates: start: 20031010, end: 20040309
  2. LORAZEPAM [Concomitant]
  3. LACTULOSE [Concomitant]
  4. MORPHINE SULFATE [Concomitant]
  5. LOSEC (OMEPRAZOLE) [Concomitant]
  6. MIRTAZAPINE [Concomitant]
  7. MAXERAN (METOCLOPRAMINE HYDROCHLORIDE) [Concomitant]

REACTIONS (4)
  - BLINDNESS [None]
  - CONFUSIONAL STATE [None]
  - GRAND MAL CONVULSION [None]
  - LACUNAR INFARCTION [None]
